FAERS Safety Report 20685781 (Version 2)
Quarter: 2022Q2

REPORT INFORMATION
  Report Type: Spontaneous
  Country: US (occurrence: US)
  Receive Date: 20220407
  Receipt Date: 20220425
  Transmission Date: 20220721
  Serious: Yes (Death)
  Sender: FDA-Public Use
  Company Number: US-PFIZER INC-202200019765

PATIENT
  Age: 86 Year
  Sex: Female
  Weight: 63.5 kg

DRUGS (1)
  1. IBRANCE [Suspect]
     Active Substance: PALBOCICLIB
     Indication: Neoplasm malignant
     Dosage: 100 MG, CYCLIC, 100MG TABLET ONCE A DAY FOR 21 DAYS AND THEN ONE WEEK OFF, BY MOUTH
     Route: 048
     Dates: start: 20211112

REACTIONS (3)
  - Death [Fatal]
  - Body height decreased [Unknown]
  - Product storage error [Unknown]
